FAERS Safety Report 24717187 (Version 1)
Quarter: 2024Q4

REPORT INFORMATION
  Report Type: Spontaneous
  Country: CN (occurrence: CN)
  Receive Date: 20241210
  Receipt Date: 20241210
  Transmission Date: 20250115
  Serious: Yes (Life-Threatening)
  Sender: JOHNSON AND JOHNSON
  Company Number: CN-JNJFOC-20241212675

PATIENT
  Age: 10 Year
  Sex: Female

DRUGS (4)
  1. REMICADE [Suspect]
     Active Substance: INFLIXIMAB
     Indication: Blau syndrome
     Route: 041
     Dates: start: 20241101, end: 20241116
  2. CHLORPHENIRAMINE MALEATE [Concomitant]
     Active Substance: CHLORPHENIRAMINE MALEATE
     Route: 048
  3. DEXAMETHASONE [Concomitant]
     Active Substance: DEXAMETHASONE
     Indication: Hypersensitivity
  4. DEXAMETHASONE [Concomitant]
     Active Substance: DEXAMETHASONE

REACTIONS (9)
  - Erythema [Recovered/Resolved]
  - Lip swelling [Recovered/Resolved]
  - Ocular hyperaemia [Unknown]
  - Dyspnoea [Recovered/Resolved]
  - Blood pressure increased [Recovered/Resolved]
  - Rash erythematous [Recovered/Resolved]
  - Infusion related reaction [Recovered/Resolved]
  - Abdominal pain [Recovered/Resolved]
  - Off label use [Recovered/Resolved]

NARRATIVE: CASE EVENT DATE: 20241116
